FAERS Safety Report 10581999 (Version 1)
Quarter: 2014Q4

REPORT INFORMATION
  Report Type: Spontaneous
  Country: US (occurrence: US)
  Receive Date: 20141113
  Receipt Date: 20141113
  Transmission Date: 20150529
  Serious: No
  Sender: FDA-Public Use
  Company Number: US-PFIZER INC-2014311124

PATIENT
  Sex: Female

DRUGS (2)
  1. GABAPENTIN. [Suspect]
     Active Substance: GABAPENTIN
     Dosage: UNK
     Dates: start: 201308, end: 20141103
  2. NEURONTIN [Suspect]
     Active Substance: GABAPENTIN
     Dosage: UNK
     Dates: start: 201308, end: 20141103

REACTIONS (5)
  - Rash [Unknown]
  - Erythema [Unknown]
  - Nervousness [Unknown]
  - Blister [Unknown]
  - Dry skin [Unknown]

NARRATIVE: CASE EVENT DATE: 2013
